FAERS Safety Report 6238077-3 (Version None)
Quarter: 2009Q2

REPORT INFORMATION
  Report Type: 
  Country: None (occurrence: None)
  Receive Date: 20090617
  Receipt Date: 20090610
  Transmission Date: 20091009
  Serious: Yes (Other)
  Sender: FDA-Public Use
  Company Number: ADR3152009 (MHRA ADR NO:. ADR204693

PATIENT
  Age: 28 Year
  Sex: Female

DRUGS (2)
  1. LAMOTRIGINE [Suspect]
  2. TOPIRAMATE [Suspect]
     Indication: CONVULSION
     Dosage: 75 MG ORAL
     Route: 048

REACTIONS (8)
  - CONVULSION [None]
  - DRUG INEFFECTIVE [None]
  - INSOMNIA [None]
  - NAUSEA [None]
  - PARAESTHESIA [None]
  - VISUAL IMPAIRMENT [None]
  - VOMITING [None]
  - WEIGHT DECREASED [None]
